FAERS Safety Report 4817547-6 (Version None)
Quarter: 2005Q4

REPORT INFORMATION
  Report Type: 
  Country: None (occurrence: None)
  Receive Date: 20051031
  Receipt Date: 20051021
  Transmission Date: 20060501
  Serious: Yes (Hospitalization, Other)
  Sender: FDA-Public Use
  Company Number: 2005137125

PATIENT
  Age: 11 Year
  Sex: Female

DRUGS (1)
  1. GENOTONORM (SOMATROPIN) [Suspect]
     Indication: ILL-DEFINED DISORDER
     Dosage: SUBCUTANEOUS
     Route: 058

REACTIONS (2)
  - ABDOMINAL PAIN [None]
  - RENAL CELL CARCINOMA STAGE UNSPECIFIED [None]
